APPROVED DRUG PRODUCT: CELEXA
Active Ingredient: CITALOPRAM HYDROBROMIDE
Strength: EQ 10MG BASE
Dosage Form/Route: TABLET;ORAL
Application: N020822 | Product #001 | TE Code: AB
Applicant: ABBVIE INC
Approved: Apr 27, 2000 | RLD: Yes | RS: No | Type: RX